FAERS Safety Report 5529425-8 (Version None)
Quarter: 2007Q4

REPORT INFORMATION
  Report Type: 
  Country: None (occurrence: None)
  Receive Date: 20071129
  Receipt Date: 20071121
  Transmission Date: 20080405
  Serious: Yes (Death)
  Sender: FDA-Public Use
  Company Number: IR-ROCHE-533300

PATIENT
  Age: 41 Year
  Sex: Female

DRUGS (2)
  1. XELODA [Suspect]
     Indication: BREAST CANCER
     Route: 048
  2. AVASTIN [Suspect]
     Indication: BREAST CANCER
     Dosage: DOSAGE: 7.5/KG
     Route: 065

REACTIONS (2)
  - DISEASE PROGRESSION [None]
  - DYSPNOEA [None]
